FAERS Safety Report 14921129 (Version 1)
Quarter: 2018Q2

REPORT INFORMATION
  Report Type: Report from Study
  Country: IT (occurrence: IT)
  Receive Date: 20180521
  Receipt Date: 20180521
  Transmission Date: 20180711
  Serious: Yes (Other)
  Sender: FDA-Public Use
  Company Number: IT-GILEAD-2018-0338015

PATIENT
  Age: 32 Year
  Sex: Male

DRUGS (2)
  1. MINIAS [Suspect]
     Active Substance: LORMETAZEPAM
     Indication: ANXIETY
     Route: 048
     Dates: start: 20180429, end: 20180429
  2. EMTRICITABINE/RILPIVIRINE/TENOFOVIR ALAFENAMIDE [Suspect]
     Active Substance: EMTRICITABINE\RILPIVIRINE HYDROCHLORIDE\TENOFOVIR ALAFENAMIDE FUMARATE
     Indication: BLOOD HIV RNA
     Dosage: 10 DF, UNK
     Route: 048
     Dates: start: 20180429, end: 20180429

REACTIONS (2)
  - Suicide attempt [Recovered/Resolved]
  - Sopor [Recovered/Resolved]

NARRATIVE: CASE EVENT DATE: 20180429
